FAERS Safety Report 25818970 (Version 1)
Quarter: 2025Q3

REPORT INFORMATION
  Report Type: Spontaneous
  Country: US (occurrence: US)
  Receive Date: 20250918
  Receipt Date: 20250918
  Transmission Date: 20251021
  Serious: No
  Sender: BRISTOL-MYERS SQUIBB COMPANY
  Company Number: US-BRISTOL-MYERS SQUIBB COMPANY-2025-128773

PATIENT
  Age: 76 Year
  Sex: Male
  Weight: 96.62 kg

DRUGS (1)
  1. POMALYST [Suspect]
     Active Substance: POMALIDOMIDE
     Indication: Plasma cell myeloma refractory

REACTIONS (2)
  - Diarrhoea [Recovering/Resolving]
  - Visual impairment [Recovering/Resolving]
